FAERS Safety Report 6138776-8 (Version None)
Quarter: 2009Q2

REPORT INFORMATION
  Report Type: 
  Country: None (occurrence: None)
  Receive Date: 20090327
  Receipt Date: 20090313
  Transmission Date: 20091009
  Serious: Yes (Hospitalization)
  Sender: FDA-Public Use
  Company Number: 2009S1004909

PATIENT
  Sex: Male

DRUGS (2)
  1. CIPROFLOXACIN HCL [Suspect]
     Indication: CYSTITIS
     Dosage: 250 MG;TWICE A DAY;ORAL
     Route: 048
     Dates: start: 20090302, end: 20090306
  2. URISPAS [Suspect]
     Indication: MUSCLE SPASMS

REACTIONS (8)
  - APHAGIA [None]
  - DYSURIA [None]
  - GASTRIC DISORDER [None]
  - HALLUCINATION [None]
  - HEART RATE INCREASED [None]
  - HYPOPHAGIA [None]
  - PERSONALITY CHANGE [None]
  - VOMITING [None]
